FAERS Safety Report 16184278 (Version 1)
Quarter: 2019Q2

REPORT INFORMATION
  Report Type: Spontaneous
  Country: CA (occurrence: CA)
  Receive Date: 20190411
  Receipt Date: 20190411
  Transmission Date: 20190711
  Serious: Yes (Other)
  Sender: FDA-Public Use
  Company Number: CA-ICU MEDICAL, INC.-ICU2019CA00049

PATIENT

DRUGS (2)
  1. SODIUM CHLORIDE INJECTION [Suspect]
     Active Substance: SODIUM CHLORIDE
     Indication: VEHICLE SOLUTION USE
     Dosage: 7 MILLILITER(TOTAL)
     Route: 042
  2. TROMBOJECT [Concomitant]
     Indication: SCLEROTHERAPY
     Dosage: 4 MILLILITER(TOTAL)
     Route: 042

REACTIONS (5)
  - Injection site pain [Recovered/Resolved]
  - Product odour abnormal [Recovered/Resolved]
  - Injection site swelling [Recovered/Resolved]
  - Necrotising soft tissue infection [Recovered/Resolved]
  - Paraesthesia [Recovered/Resolved]
